FAERS Safety Report 18192694 (Version 1)
Quarter: 2020Q3

REPORT INFORMATION
  Report Type: Other
  Country: GB (occurrence: GB)
  Receive Date: 20200825
  Receipt Date: 20200825
  Transmission Date: 20201103
  Serious: No
  Sender: FDA-Public Use
  Company Number: GB-LUPIN PHARMACEUTICALS INC.-2019-07457

PATIENT
  Age: 91 Year
  Sex: Male
  Weight: 57 kg

DRUGS (11)
  1. MIRTAZAPINE. [Concomitant]
     Active Substance: MIRTAZAPINE
     Indication: ILL-DEFINED DISORDER
     Dosage: 1 DOSAGE FORM, QD, TAKE ONE AT NIGHT IN DOSSETT
     Route: 065
     Dates: start: 20180925
  2. MEMANTINE. [Suspect]
     Active Substance: MEMANTINE
     Indication: ILL-DEFINED DISORDER
     Dosage: UNK, HALF TABLET DAILY
     Route: 065
     Dates: start: 20190806, end: 20190904
  3. RIVAROXABAN [Concomitant]
     Active Substance: RIVAROXABAN
     Indication: ILL-DEFINED DISORDER
     Dosage: 1 DOSAGE FORM, QD, TAKE ONCE DAILY IN DOSSETT
     Route: 065
     Dates: start: 20171017
  4. MEMANTINE. [Suspect]
     Active Substance: MEMANTINE
     Dosage: UNK
     Route: 065
     Dates: start: 20190904
  5. BISOPROLOL [Concomitant]
     Active Substance: BISOPROLOL
     Indication: ILL-DEFINED DISORDER
     Dosage: 1 DOSAGE FORM, QD, TAKE ONE EACH MORNING
     Route: 065
     Dates: start: 20190806
  6. CETOMACROGOL 1000 [Concomitant]
     Indication: ILL-DEFINED DISORDER
     Dosage: UNK, APPLY AS DIRECTED
     Route: 065
     Dates: start: 20190621
  7. PERINDOPRIL TERT?BUTYLAMINE [Concomitant]
     Active Substance: PERINDOPRIL ERBUMINE
     Indication: ILL-DEFINED DISORDER
     Dosage: 1 DOSAGE FORM, QD
     Route: 065
     Dates: start: 20170309
  8. FINASTERIDE. [Concomitant]
     Active Substance: FINASTERIDE
     Indication: ILL-DEFINED DISORDER
     Dosage: 1 DOSAGE FORM, QD, TAKE ONE DAILY IN DOSSETT
     Route: 065
     Dates: start: 20190514
  9. HYDROXOCOBALAMIN [Concomitant]
     Active Substance: HYDROXOCOBALAMIN
     Indication: ILL-DEFINED DISORDER
     Dosage: UNK, ONCE EVERY THREE MONTHS
     Route: 065
     Dates: start: 20180718
  10. COLCHICINE. [Concomitant]
     Active Substance: COLCHICINE
     Indication: ILL-DEFINED DISORDER
     Dosage: UNK, 1 TABLET 2?3 TIMES A DAY UNTIL PAIN RELIEF ACHE...
     Route: 065
     Dates: start: 20190705, end: 20190723
  11. FOLIC ACID. [Concomitant]
     Active Substance: FOLIC ACID
     Indication: ILL-DEFINED DISORDER
     Dosage: 1 DOSAGE FORM, QD, ONCE DAILY IN DOSSETT BOX
     Route: 065
     Dates: start: 20180718, end: 20190806

REACTIONS (1)
  - Rash macular [Recovered/Resolved]

NARRATIVE: CASE EVENT DATE: 20190904
